FAERS Safety Report 24701048 (Version 5)
Quarter: 2025Q2

REPORT INFORMATION
  Report Type: Report from Study
  Country: CA (occurrence: CA)
  Receive Date: 20241205
  Receipt Date: 20250526
  Transmission Date: 20250716
  Serious: Yes (Other)
  Sender: TAKEDA
  Company Number: CA-TAKEDA-2024TUS111849

PATIENT
  Age: 62 Year
  Sex: Female

DRUGS (13)
  1. VEDOLIZUMAB [Suspect]
     Active Substance: VEDOLIZUMAB
     Indication: Colitis ulcerative
  2. VEDOLIZUMAB [Suspect]
     Active Substance: VEDOLIZUMAB
  3. VEDOLIZUMAB [Suspect]
     Active Substance: VEDOLIZUMAB
  4. VEDOLIZUMAB [Suspect]
     Active Substance: VEDOLIZUMAB
  5. REMICADE [Suspect]
     Active Substance: INFLIXIMAB
     Indication: Product used for unknown indication
  6. JANUVIA [Concomitant]
     Active Substance: SITAGLIPTIN PHOSPHATE
  7. M cal [Concomitant]
  8. CLONIDINE [Concomitant]
     Active Substance: CLONIDINE
  9. LOPROX [Concomitant]
     Active Substance: CICLOPIROX\CICLOPIROX OLAMINE
     Route: 061
  10. ROSUVASTATIN [Concomitant]
     Active Substance: ROSUVASTATIN
  11. MUPIROCIN [Concomitant]
     Active Substance: MUPIROCIN
     Route: 061
  12. IRBESARTAN [Concomitant]
     Active Substance: IRBESARTAN
  13. VITAMIN D NOS [Concomitant]
     Active Substance: CHOLECALCIFEROL\ERGOCALCIFEROL

REACTIONS (14)
  - Haematochezia [Unknown]
  - Constipation [Recovered/Resolved]
  - Carpal tunnel syndrome [Unknown]
  - Peripheral swelling [Unknown]
  - Nerve injury [Unknown]
  - BK virus infection [Unknown]
  - Diarrhoea [Unknown]
  - Oedema peripheral [Unknown]
  - Snoring [Unknown]
  - Photosensitivity reaction [Recovering/Resolving]
  - Defaecation urgency [Recovering/Resolving]
  - Abdominal pain [Unknown]
  - Flatulence [Unknown]
  - Fatigue [Unknown]

NARRATIVE: CASE EVENT DATE: 20241030
